FAERS Safety Report 9698327 (Version 2)
Quarter: 2014Q2

REPORT INFORMATION
  Report Type: Spontaneous
  Country: US (occurrence: US)
  Receive Date: 20131120
  Receipt Date: 20140423
  Transmission Date: 20141212
  Serious: Yes (Life-Threatening, Hospitalization)
  Sender: FDA-Public Use
  Company Number: US-BAYER-2013-139896

PATIENT
  Age: 21 Year
  Sex: Female
  Weight: 97.51 kg

DRUGS (12)
  1. MIRENA [Suspect]
     Indication: CONTRACEPTION
     Dosage: 20 MCG/24HR, CONT
     Route: 015
     Dates: start: 20130305, end: 20130408
  2. DOLOBID [Concomitant]
     Dosage: 500 MG, 10 DAYS
     Route: 048
  3. ULTRAM [Concomitant]
     Dosage: 50 MG, AS NEEDED
     Route: 048
  4. ZITHROMAX [Concomitant]
     Dosage: 250 MG, UNK
     Route: 048
  5. IBUPROFEN [Concomitant]
     Dosage: 600 MG, EVERY 6 HOURS; 14 DAYS
     Route: 048
  6. PRENATAL VITAMINS [Concomitant]
     Dosage: ONCE A DAY
     Route: 048
  7. ACYCLOVIR [ACICLOVIR] [Concomitant]
     Dosage: 400 MG, 2 TIMES A DAY
     Route: 048
  8. PROCARDIA [Concomitant]
     Dosage: ONCE A DAY
     Route: 048
  9. MOTRIN [Concomitant]
     Indication: PAIN
     Dosage: EVERY 8 HOURS AS NEEDED
     Route: 048
  10. PERCOCET [Concomitant]
     Indication: PAIN
     Dosage: 5/325 EVERY 6 HOURS
     Route: 048
  11. DEPO PROVERA [Concomitant]
  12. ALLEGRA [Concomitant]

REACTIONS (8)
  - Uterine perforation [None]
  - Injury [None]
  - Abdominal pain lower [None]
  - General physical health deterioration [None]
  - Emotional distress [None]
  - Anxiety [None]
  - Anhedonia [None]
  - Device dislocation [None]
